FAERS Safety Report 5892331-3 (Version None)
Quarter: 2008Q3

REPORT INFORMATION
  Report Type: 
  Country: None (occurrence: None)
  Receive Date: 20080918
  Receipt Date: 20080918
  Transmission Date: 20090109
  Serious: No
  Sender: FDA-Public Use
  Company Number: None

PATIENT
  Age: 81 Year
  Sex: Male
  Weight: 85.78 kg

DRUGS (1)
  1. FACTOR IX COMPLEX [Suspect]
     Indication: INTERNATIONAL NORMALISED RATIO INCREASED
     Dosage: 1190 UNITS ONCE IV
     Route: 042

REACTIONS (6)
  - DYSPNOEA [None]
  - FLUSHING [None]
  - OXYGEN SATURATION DECREASED [None]
  - RESTLESSNESS [None]
  - STRIDOR [None]
  - TACHYCARDIA [None]
